FAERS Safety Report 14566680 (Version 1)
Quarter: 2018Q1

REPORT INFORMATION
  Report Type: Spontaneous
  Country: US (occurrence: US)
  Receive Date: 20180221
  Receipt Date: 20180221
  Transmission Date: 20180509
  Serious: Yes (Life-Threatening, Hospitalization)
  Sender: FDA-Public Use
  Company Number: None

PATIENT
  Age: 86 Year
  Sex: Female
  Weight: 90 kg

DRUGS (14)
  1. SCOPOLAMINE PATCH [Suspect]
     Active Substance: SCOPOLAMINE
     Indication: SINUSITIS
     Dosage: ?          OTHER ROUTE:BEHIND EAR PATCH?
     Dates: start: 20180215, end: 20180219
  2. MEMANTINE. [Concomitant]
     Active Substance: MEMANTINE
  3. SUPPLEMENTS [Concomitant]
     Active Substance: UNSPECIFIED INGREDIENT
  4. LATANAPROST OPHTHALMIC SOLUTION 0.005% [Concomitant]
     Active Substance: LATANOPROST
  5. OMEPRAZOLE. [Concomitant]
     Active Substance: OMEPRAZOLE
  6. TOPICAL PAD FOR NECK [Concomitant]
  7. PRREDNISONE [Concomitant]
  8. VITAMIN D3 [Concomitant]
     Active Substance: CHOLECALCIFEROL
  9. METOLZSONE [Concomitant]
  10. SYSTANE (HYPROMELLOSE 2910 (4000 MPA.S)) [Concomitant]
     Active Substance: HYPROMELLOSE 2910 (4000 MPA.S)
  11. POTASSIUM CHLORIDE. [Concomitant]
     Active Substance: POTASSIUM CHLORIDE
  12. TROLAMINE [Concomitant]
     Active Substance: TROLAMINE
  13. METFORMIN [Concomitant]
     Active Substance: METFORMIN HYDROCHLORIDE
  14. MULTIVITAMIN [Concomitant]
     Active Substance: VITAMINS

REACTIONS (7)
  - Dehydration [None]
  - Eye pruritus [None]
  - Cough [None]
  - Cerebrovascular accident [None]
  - Hypophagia [None]
  - Glaucoma [None]
  - Chronic obstructive pulmonary disease [None]

NARRATIVE: CASE EVENT DATE: 20180215
